FAERS Safety Report 9766277 (Version 4)
Quarter: 2015Q2

REPORT INFORMATION
  Report Type: Spontaneous
  Country: US (occurrence: US)
  Receive Date: 20131217
  Receipt Date: 20150527
  Transmission Date: 20150821
  Serious: No
  Sender: FDA-Public Use
  Company Number: US-GLAXOSMITHKLINE-A1024415A

PATIENT
  Age: 64 Year
  Sex: Male

DRUGS (2)
  1. VOTRIENT [Suspect]
     Active Substance: PAZOPANIB HYDROCHLORIDE
     Indication: MALIGNANT URINARY TRACT NEOPLASM
     Dosage: 200 MG TABLETS 4 TABLETS OR 800 MG DAILYREDUCED TO 600 MG DAILYREDUCED TO 400 MG DAILYNOW 400 M[...]
     Route: 048
     Dates: start: 20130318
  2. VOTRIENT [Suspect]
     Active Substance: PAZOPANIB HYDROCHLORIDE
     Dosage: 400 MG, QD FOR 4 WEEKS

REACTIONS (7)
  - Dyspepsia [Unknown]
  - Drug ineffective [Unknown]
  - Stomatitis [Recovering/Resolving]
  - Diarrhoea [Unknown]
  - Mucosal inflammation [Recovering/Resolving]
  - Fatigue [Unknown]
  - Oral pain [Recovering/Resolving]

NARRATIVE: CASE EVENT DATE: 20130426
